FAERS Safety Report 10024704 (Version 2)
Quarter: 2014Q1

REPORT INFORMATION
  Report Type: Spontaneous
  Country: US (occurrence: None)
  Receive Date: 20140207
  Receipt Date: 20140210
  Transmission Date: 20141002
  Serious: Yes (Other)
  Sender: FDA-Public Use
  Company Number: ADR-2008-4563

PATIENT
  Sex: Male

DRUGS (3)
  1. BACLOFEN INTRATHECAL [Suspect]
     Indication: MUSCLE SPASTICITY
  2. MORPHINE (25 MG/ML) [Suspect]
  3. CLONIDINE [Concomitant]

REACTIONS (14)
  - Local swelling [None]
  - Device malfunction [None]
  - Drug withdrawal syndrome [None]
  - No therapeutic response [None]
  - Implant site infection [None]
  - Device damage [None]
  - Malaise [None]
  - Impaired driving ability [None]
  - Impaired gastric emptying [None]
  - Device kink [None]
  - Drug screen positive [None]
  - Legal problem [None]
  - Coordination abnormal [None]
  - Gram stain positive [None]
